FAERS Safety Report 21054418 (Version 1)
Quarter: 2022Q3

REPORT INFORMATION
  Report Type: Spontaneous
  Country: US (occurrence: US)
  Receive Date: 20220707
  Receipt Date: 20220707
  Transmission Date: 20221027
  Serious: No
  Sender: FDA-Public Use
  Company Number: US-PFIZER INC-202200933556

PATIENT
  Age: 44 Year
  Sex: Female
  Weight: 104.33 kg

DRUGS (2)
  1. PREGABALIN [Suspect]
     Active Substance: PREGABALIN
     Indication: Fibromyalgia
     Dosage: 300 MG, 2X/DAY
     Route: 048
  2. PREGABALIN [Suspect]
     Active Substance: PREGABALIN
     Indication: Neuralgia

REACTIONS (1)
  - Drug ineffective [Unknown]
